FAERS Safety Report 5343883-3 (Version None)
Quarter: 2007Q2

REPORT INFORMATION
  Report Type: 
  Country: None (occurrence: None)
  Receive Date: 20070531
  Receipt Date: 20070531
  Transmission Date: 20071010
  Serious: Yes (Life-Threatening, Hospitalization, Other)
  Sender: FDA-Public Use
  Company Number: None

PATIENT
  Age: 27 Year
  Sex: Female
  Weight: 52.1637 kg

DRUGS (3)
  1. CIPROFLOXACIN [Suspect]
     Indication: ANXIETY
     Dosage: 1 2 TIMES
  2. CIPROFLOXACIN [Suspect]
     Indication: COLITIS
     Dosage: 1 2 TIMES
  3. CIPROFLOXACIN [Suspect]
     Indication: DEPRESSION
     Dosage: 1 2 TIMES

REACTIONS (4)
  - ANXIETY [None]
  - COLITIS [None]
  - CRYING [None]
  - URINARY TRACT INFECTION [None]
